FAERS Safety Report 20827596 (Version 5)
Quarter: 2022Q2

REPORT INFORMATION
  Report Type: Spontaneous
  Country: FR (occurrence: FR)
  Receive Date: 20220513
  Receipt Date: 20220606
  Transmission Date: 20220720
  Serious: Yes (Death, Other)
  Sender: FDA-Public Use
  Company Number: None

PATIENT
  Age: 87 Year
  Sex: Female
  Weight: 75 kg

DRUGS (14)
  1. COMIRNATY [Suspect]
     Active Substance: TOZINAMERAN
     Indication: COVID-19 immunisation
     Dosage: DOSE 4 (BOOSTER), 30 UG, SINGLE
     Route: 030
     Dates: start: 20220426, end: 20220426
  2. ELIQUIS [Suspect]
     Active Substance: APIXABAN
     Indication: Thrombosis prophylaxis
     Dosage: 5 MG, 2X/DAY
     Route: 048
  3. NOVATREX (METHOTREXATE) [Suspect]
     Active Substance: METHOTREXATE SODIUM
     Indication: Seronegative arthritis
     Dosage: 5 MG/WEEK, 2 TBALETS ON MONDAY
     Route: 048
  4. TAHOR [Suspect]
     Active Substance: ATORVASTATIN CALCIUM
     Indication: Dyslipidaemia
     Dosage: 80 MG, 1X/DAY (0-0-1)
     Route: 048
  5. ALDACTONE [Suspect]
     Active Substance: SPIRONOLACTONE
     Indication: Hypertension
     Dosage: 25 MG/DAY
     Route: 048
  6. CORGARD [Suspect]
     Active Substance: NADOLOL
     Indication: Hypertension
     Dosage: 40 MG X 2/J
     Route: 048
  7. FOLIC ACID [Suspect]
     Active Substance: FOLIC ACID
     Dosage: 5MG/DAY
     Route: 048
  8. ESOMEPRAZOLE [Suspect]
     Active Substance: ESOMEPRAZOLE
     Dosage: 20 MG/DAY, 0-0-1
     Route: 048
  9. LEVOTHYROXINE SODIUM [Suspect]
     Active Substance: LEVOTHYROXINE SODIUM
     Indication: Hypothyroidism
     Dosage: 125 UG/DAY
     Route: 048
  10. PERINDOPRIL [Suspect]
     Active Substance: PERINDOPRIL
     Indication: Hypertension
     Dosage: 2 MG/DAY
     Route: 048
  11. FUROSEMIDE [Suspect]
     Active Substance: FUROSEMIDE
     Dosage: 20 MG, 2X/DAY, 1-1-0
     Route: 048
  12. CORDARONE [Suspect]
     Active Substance: AMIODARONE HYDROCHLORIDE
     Indication: Ventricular tachycardia
     Dosage: 200 MG/DAY
     Route: 048
  13. CLOPIDOGREL [Concomitant]
     Active Substance: CLOPIDOGREL BISULFATE
     Dosage: UNK
  14. BISOPROLOL [Concomitant]
     Active Substance: BISOPROLOL
     Dosage: 5 MG, 2X/DAY, 1-0-1

REACTIONS (9)
  - Off label use [Fatal]
  - Immunisation [Fatal]
  - Sudden death [Fatal]
  - Ventricular fibrillation [Fatal]
  - Disease progression [Fatal]
  - Stress [Fatal]
  - Fatigue [Fatal]
  - Loss of consciousness [Unknown]
  - Feeling abnormal [Unknown]

NARRATIVE: CASE EVENT DATE: 20220426
